FAERS Safety Report 5116956-8 (Version None)
Quarter: 2006Q3

REPORT INFORMATION
  Report Type: 
  Country: None (occurrence: None)
  Receive Date: 20060925
  Receipt Date: 20060918
  Transmission Date: 20061208
  Serious: Yes (Life-Threatening, Other)
  Sender: FDA-Public Use
  Company Number: 2006S1000183

PATIENT
  Age: 1 Decade
  Sex: Male

DRUGS (15)
  1. NITRIC OXIDE [Suspect]
     Indication: LUNG DISORDER
     Dosage: 5 PPM;CONT, INH
     Route: 055
     Dates: start: 20060910
  2. NITRIC OXIDE [Suspect]
     Indication: PROPHYLAXIS
     Dosage: 5 PPM;CONT, INH
     Route: 055
     Dates: start: 20060910
  3. AMPICILLIN SODIUM [Concomitant]
  4. AMIKACIN [Concomitant]
  5. SURVANTA [Concomitant]
  6. DOPAMINE [Concomitant]
  7. FENTANYL [Concomitant]
  8. SODIUM BICARBONATE [Concomitant]
  9. SANDOGLOBULIN [Concomitant]
  10. DOPAMINE [Concomitant]
  11. FENTANYL [Concomitant]
  12. METRONIDAZOLE [Concomitant]
  13. IBUPROFEN [Concomitant]
  14. CEFOTAXIME [Concomitant]
  15. VANCOMYCIN [Concomitant]

REACTIONS (10)
  - DISEASE PROGRESSION [None]
  - INTESTINAL PERFORATION [None]
  - NECROTISING ENTEROCOLITIS NEONATAL [None]
  - NEONATAL DISORDER [None]
  - NEONATAL HYPOTENSION [None]
  - NEONATAL HYPOXIA [None]
  - PALLOR [None]
  - PNEUMOTHORAX [None]
  - PULMONARY HYPERTENSION [None]
  - SEPSIS NEONATAL [None]
